FAERS Safety Report 8732707 (Version 2)
Quarter: 2012Q4

REPORT INFORMATION
  Report Type: 
  Country: US (occurrence: US)
  Receive Date: 20120820
  Receipt Date: 20120906
  Transmission Date: 20130627
  Serious: Yes (Life-Threatening, Hospitalization, Other)
  Sender: FDA-Public Use
  Company Number: US-MPIJNJ-2012-05760

PATIENT
  Age: 14 Year
  Sex: Male
  Weight: 71.4 kg

DRUGS (5)
  1. VELCADE [Suspect]
     Indication: ACUTE MYELOID LEUKAEMIA
     Dosage: 1.3 mg/m2, Cyclic
     Route: 040
     Dates: start: 20120809, end: 20120816
  2. CYTARABINE [Suspect]
     Indication: ACUTE MYELOID LEUKAEMIA
     Dosage: 100 mg/m2, Cyclic
     Route: 042
     Dates: start: 20120809, end: 20120818
  3. CYTARABINE [Suspect]
     Dosage: 70 mg, Cyclic
     Route: 037
     Dates: start: 20120809, end: 20120809
  4. ETOPOSIDE [Suspect]
     Indication: ACUTE MYELOID LEUKAEMIA
     Dosage: 100 mg/m2, Cyclic
     Route: 042
     Dates: start: 20120809, end: 20120813
  5. DAUNORUBICIN HYDROCHLORIDE [Suspect]
     Indication: ACUTE MYELOID LEUKAEMIA
     Dosage: 50 mg/m2, Cyclic
     Route: 042
     Dates: start: 20120809, end: 20120813

REACTIONS (5)
  - Hypotension [Recovered/Resolved]
  - Sepsis [Recovered/Resolved]
  - Back pain [Not Recovered/Not Resolved]
  - Febrile neutropenia [Not Recovered/Not Resolved]
  - Dyspnoea [Recovered/Resolved]
